FAERS Safety Report 8054394-9 (Version None)
Quarter: 2012Q1

REPORT INFORMATION
  Report Type: 
  Country: None (occurrence: None)
  Receive Date: 20120118
  Receipt Date: 20120118
  Transmission Date: 20120608
  Serious: Yes (Other)
  Sender: FDA-Public Use
  Company Number: AU-BAYER-2012-005120

PATIENT
  Sex: Female

DRUGS (2)
  1. THYROID PREPARATIONS [Concomitant]
     Indication: AUTOIMMUNE THYROIDITIS
  2. MAGNEVIST [Suspect]
     Indication: NUCLEAR MAGNETIC RESONANCE IMAGING
     Dosage: UNK
     Dates: start: 20110401, end: 20110401

REACTIONS (3)
  - AUTOIMMUNE DISORDER [None]
  - HYPOAESTHESIA [None]
  - NEUROLOGICAL SYMPTOM [None]
